FAERS Safety Report 7365183-2 (Version None)
Quarter: 2011Q1

REPORT INFORMATION
  Report Type: 
  Country: None (occurrence: None)
  Receive Date: 20110321
  Receipt Date: 20110309
  Transmission Date: 20110831
  Serious: Yes (Hospitalization)
  Sender: FDA-Public Use
  Company Number: CHPA2011CA03770

PATIENT
  Age: 50 Year
  Sex: Male
  Weight: 77.098 kg

DRUGS (4)
  1. DIOVAN [Interacting]
     Dosage: UNK
     Route: 048
  2. DIMETHYL SULFOXIDE [Suspect]
     Dosage: UNK, UNK
     Route: 061
     Dates: start: 20110305, end: 20110305
  3. VOLTAREN SPRAY 4% [Interacting]
     Dosage: UNK, TID
     Route: 061
     Dates: start: 20110305, end: 20110305
  4. CIPRALEX                                /DEN/ [Concomitant]
     Indication: ANXIETY
     Dosage: UNK
     Route: 048

REACTIONS (7)
  - HEADACHE [None]
  - ANXIETY [None]
  - HYPERTENSION [None]
  - FEELING ABNORMAL [None]
  - DRUG INTERACTION [None]
  - TINNITUS [None]
  - DIZZINESS [None]
